FAERS Safety Report 6521206-1 (Version None)
Quarter: 2009Q4

REPORT INFORMATION
  Report Type: 
  Country: None (occurrence: None)
  Receive Date: 20091222
  Receipt Date: 20091207
  Transmission Date: 20100525
  Serious: Yes (Hospitalization, Disabling, Other)
  Sender: FDA-Public Use
  Company Number: TRP_05210_2008

PATIENT
  Sex: Female
  Weight: 77 kg

DRUGS (16)
  1. RIBAVIRIN [Suspect]
     Indication: HEPATITIS C
     Dosage: (5 DF)
     Dates: start: 20000601, end: 20001201
  2. RIBAVIRIN [Suspect]
     Indication: HEPATITIS C
     Dosage: (5 DF)
     Dates: start: 20010501, end: 20010901
  3. INTERFERON ALFA-2B [Suspect]
     Indication: HEPATITIS C
     Dosage: (DF SUBCUTANEOUS), (DF SUBCUTANEOUS)
     Route: 058
     Dates: start: 20000601, end: 20001201
  4. INTERFERON ALFA-2B [Suspect]
     Indication: HEPATITIS C
     Dosage: (DF SUBCUTANEOUS), (DF SUBCUTANEOUS)
     Route: 058
     Dates: start: 20010501, end: 20010901
  5. RIBAVIRIN [Suspect]
     Indication: HEPATITIS C
     Dosage: (5 DF)
     Dates: start: 20020101, end: 20021101
  6. PEG-INTRON [Suspect]
     Indication: HEPATITIS C
     Dosage: (DF SUBCUTANEOUS)
     Route: 058
     Dates: start: 20020101, end: 20021101
  7. RIBAVIRIN [Suspect]
     Indication: HEPATITIS C
     Dosage: (DF)
     Dates: start: 20030501, end: 20040402
  8. INTERFERON [Suspect]
     Indication: HEPATITIS C
     Dosage: (DF SUBCUTANEOUS)
     Route: 058
     Dates: start: 20030501, end: 20040401
  9. RIBAVIRIN [Suspect]
     Indication: HEPATITIS C
     Dosage: (400 MG QD)
     Dates: start: 20041201, end: 20051101
  10. INFERGEN [Suspect]
     Indication: HEPATITIS C
     Dosage: (15 UG QD, DF SUBCUTANEOUS)
     Route: 058
     Dates: start: 20041201, end: 20051101
  11. PROCRIT [Suspect]
     Indication: DRUG USE FOR UNKNOWN INDICATION
     Dosage: (DF)
     Dates: start: 20041201, end: 20051101
  12. RIBAVIRIN [Suspect]
     Indication: HEPATITIS C
     Dosage: (1000 MG, 600 MG IN THE MORNING, 400 MG IN THE EVENING ORAL)
     Route: 048
     Dates: start: 20090201
  13. PEGASYS [Suspect]
     Indication: HEPATITIS C
     Dosage: (180 UG 1X/WEEK SUBCUTANEOUS)
     Route: 058
     Dates: start: 20090201
  14. XANAX [Concomitant]
  15. MILK THISTLE (UNKNOWN) [Concomitant]
  16. REGLAN  /00041901/ (UNKNOWN) [Concomitant]

REACTIONS (27)
  - ANAEMIA [None]
  - ANXIETY [None]
  - ASTHENIA [None]
  - CRYING [None]
  - DEHYDRATION [None]
  - DEPRESSION [None]
  - DISTURBANCE IN ATTENTION [None]
  - EMOTIONAL DISTRESS [None]
  - ERYTHEMA [None]
  - FATIGUE [None]
  - FEELING ABNORMAL [None]
  - FEELING HOT [None]
  - HEADACHE [None]
  - HYPOPHAGIA [None]
  - HYPOTHYROIDISM [None]
  - IMPAIRED WORK ABILITY [None]
  - INSOMNIA [None]
  - MALAISE [None]
  - MEMORY IMPAIRMENT [None]
  - MIGRAINE [None]
  - NAUSEA [None]
  - PAPILLOMA VIRAL INFECTION [None]
  - PORPHYRIA NON-ACUTE [None]
  - THERAPEUTIC RESPONSE DECREASED [None]
  - THYROID DISORDER [None]
  - VIRAL INFECTION [None]
  - VISUAL ACUITY REDUCED [None]
